FAERS Safety Report 23203437 (Version 2)
Quarter: 2023Q4

REPORT INFORMATION
  Report Type: Report from Study
  Country: BR (occurrence: BR)
  Receive Date: 20231120
  Receipt Date: 20231203
  Transmission Date: 20240110
  Serious: Yes (Life-Threatening, Hospitalization)
  Sender: FDA-Public Use
  Company Number: BR-JNJFOC-20231141885

PATIENT
  Age: 29 Year
  Sex: Female
  Weight: 66.7 kg

DRUGS (22)
  1. AMIVANTAMAB [Suspect]
     Active Substance: AMIVANTAMAB
     Indication: Non-small cell lung cancer metastatic
     Dosage: DOSE: 250 (UNSPECIFIED UNIT)
     Route: 058
     Dates: start: 20231005
  2. AMIVANTAMAB [Suspect]
     Active Substance: AMIVANTAMAB
     Dosage: DOSE: 250 (UNSPECIFIED UNIT)
     Route: 058
     Dates: start: 20230914
  3. AMIVANTAMAB [Suspect]
     Active Substance: AMIVANTAMAB
     Dosage: DOSE: 250 (UNSPECIFIED UNIT)
     Route: 058
     Dates: start: 20230915
  4. AMIVANTAMAB [Suspect]
     Active Substance: AMIVANTAMAB
     Dosage: DOSE: 250 (UNSPECIFIED UNIT)
     Route: 058
     Dates: start: 20230921
  5. AMIVANTAMAB [Suspect]
     Active Substance: AMIVANTAMAB
     Dosage: DOSE: 250 (UNSPECIFIED UNIT)
     Route: 058
     Dates: start: 20230928
  6. LAZERTINIB [Suspect]
     Active Substance: LAZERTINIB
     Indication: Non-small cell lung cancer metastatic
     Dosage: DOSE: 3 (UNSPECIFIED UNIT)
     Route: 048
     Dates: start: 20230914, end: 20231004
  7. LAZERTINIB [Suspect]
     Active Substance: LAZERTINIB
     Dosage: DOSE: 3 (UNSPECIFIED UNIT)
     Route: 048
     Dates: start: 20231005
  8. PEMETREXED [Suspect]
     Active Substance: PEMETREXED
     Indication: Non-small cell lung cancer metastatic
     Dosage: DOSE: 134.2 (UNSPECIFIED UNIT)
     Route: 065
     Dates: start: 20231005
  9. PEMETREXED [Suspect]
     Active Substance: PEMETREXED
     Dosage: DOSE: 131.2 (UNSPECIFIED UNIT)
     Route: 065
     Dates: start: 20230914
  10. PREDNISONE [Concomitant]
     Active Substance: PREDNISONE
     Indication: Prophylaxis
     Dates: start: 20230824, end: 20231023
  11. PREDNISONE [Concomitant]
     Active Substance: PREDNISONE
     Indication: Dermatitis acneiform
     Dates: start: 20231023, end: 20231027
  12. OMEPRAZOLE [Concomitant]
     Active Substance: OMEPRAZOLE
     Indication: Gastrointestinal disorder therapy
     Dates: start: 20230814, end: 20231005
  13. OMEPRAZOLE [Concomitant]
     Active Substance: OMEPRAZOLE
     Indication: Gastrointestinal disorder therapy
     Dates: start: 20231005
  14. LEVONORGESTREL AND ETHINYL ESTRADIOL [Concomitant]
     Active Substance: ETHINYL ESTRADIOL\LEVONORGESTREL
     Indication: Prophylaxis
     Dates: start: 20230814
  15. DIMENHYDRINATE [Concomitant]
     Active Substance: DIMENHYDRINATE
     Dates: start: 20230210
  16. SCOPOLAMINE [Concomitant]
     Active Substance: SCOPOLAMINE
     Dates: start: 20230911, end: 20230912
  17. DIPYRONE [Concomitant]
     Active Substance: DIPYRONE
     Dates: start: 20230911
  18. FERROUS SULFATE [Concomitant]
     Active Substance: FERROUS SULFATE
     Indication: Anaemia prophylaxis
     Dates: start: 20230707
  19. COLLAGENASE [Concomitant]
     Active Substance: COLLAGENASE CLOSTRIDIUM HISTOLYTICUM
     Indication: Wound
     Dates: start: 20231004, end: 20231022
  20. FOLIC ACID [Concomitant]
     Active Substance: FOLIC ACID
     Indication: Prophylaxis
  21. CYANOCOBALAMIN;PYRIDOXINE;THIAMINE [Concomitant]
     Indication: Prophylaxis
     Dates: start: 20230906
  22. DEXAMETHASONE [Concomitant]
     Active Substance: DEXAMETHASONE
     Indication: Prophylaxis
     Dates: start: 20230913, end: 20230915

REACTIONS (1)
  - Postoperative wound infection [Recovered/Resolved]

NARRATIVE: CASE EVENT DATE: 20231110
